FAERS Safety Report 4320835-3 (Version None)
Quarter: 2004Q1

REPORT INFORMATION
  Report Type: 
  Country: None (occurrence: None)
  Receive Date: 20040315
  Receipt Date: 20030630
  Transmission Date: 20041129
  Serious: Yes (Other)
  Sender: FDA-Public Use
  Company Number: PHEH2003US03602

PATIENT
  Age: 35 Year
  Sex: Female

DRUGS (4)
  1. TRILEPTAL [Suspect]
     Indication: DEPRESSION
     Dosage: 150 MG, QHS, ORAL; SEE IMAGE
     Route: 048
     Dates: start: 20020913
  2. TRILEPTAL [Suspect]
     Indication: DEPRESSION
     Dosage: 150 MG, QHS, ORAL; SEE IMAGE
     Route: 048
  3. TRILEPTAL [Suspect]
     Indication: DEPRESSION
     Dosage: 150 MG, QHS, ORAL; SEE IMAGE
     Route: 048
     Dates: start: 20030401
  4. WELLBUTRIN SR [Concomitant]

REACTIONS (1)
  - EAR INFECTION [None]
